FAERS Safety Report 7811138-0 (Version None)
Quarter: 2011Q4

REPORT INFORMATION
  Report Type: 
  Country: None (occurrence: None)
  Receive Date: 20111013
  Receipt Date: 20111005
  Transmission Date: 20120403
  Serious: Yes (Other)
  Sender: FDA-Public Use
  Company Number: US-ASTELLAS-2011US006588

PATIENT
  Age: 61 Year
  Sex: Female

DRUGS (4)
  1. PROGRAF [Suspect]
     Indication: PANCREAS TRANSPLANT
  2. VENLAFAXINE [Suspect]
     Dosage: 75 MG, UID/QD
     Route: 065
  3. VENLAFAXINE [Suspect]
     Indication: MAJOR DEPRESSION
     Dosage: 37.5 MG, UID/QD
     Route: 065
  4. PROGRAF [Suspect]
     Indication: RENAL TRANSPLANT
     Dosage: UNK
     Route: 065

REACTIONS (1)
  - SEROTONIN SYNDROME [None]
